FAERS Safety Report 5119857-4 (Version None)
Quarter: 2006Q4

REPORT INFORMATION
  Report Type: 
  Country: None (occurrence: None)
  Receive Date: 20061003
  Receipt Date: 20060926
  Transmission Date: 20070319
  Serious: Yes (Hospitalization)
  Sender: FDA-Public Use
  Company Number: GB-ROXANE LABORATORIES, INC-2006-BP-11349RO

PATIENT
  Age: 38 Year
  Sex: Female

DRUGS (3)
  1. CLARITHROMYCIN [Suspect]
     Indication: PHARYNGOLARYNGEAL PAIN
  2. CLARITHROMYCIN [Suspect]
     Indication: RHINORRHOEA
  3. HOMEOPATHIC MEDICATION [Suspect]
     Indication: IMMUNE SYSTEM DISORDER

REACTIONS (6)
  - HEADACHE [None]
  - MOUTH ULCERATION [None]
  - NIGHT SWEATS [None]
  - PYREXIA [None]
  - RASH [None]
  - TUBULOINTERSTITIAL NEPHRITIS [None]
